FAERS Safety Report 8134346-0 (Version None)
Quarter: 2012Q1

REPORT INFORMATION
  Report Type: 
  Country: None (occurrence: None)
  Receive Date: 20120103
  Receipt Date: 20111110
  Transmission Date: 20120608
  Serious: No
  Sender: FDA-Public Use
  Company Number: AE-2011-003274

PATIENT
  Age: 49 Year
  Sex: Female
  Weight: 102.5129 kg

DRUGS (3)
  1. PEGASYS [Concomitant]
  2. COPEGUS [Concomitant]
  3. INCIVEK [Suspect]
     Dosage: 2250 MG (750 MG, 1 IN 8 HR), ORAL
     Route: 048
     Dates: start: 20111004

REACTIONS (3)
  - EATING DISORDER [None]
  - RECTAL HAEMORRHAGE [None]
  - ANORECTAL DISCOMFORT [None]
